FAERS Safety Report 8011423-6 (Version None)
Quarter: 2011Q4

REPORT INFORMATION
  Report Type: 
  Country: None (occurrence: None)
  Receive Date: 20111228
  Receipt Date: 20111221
  Transmission Date: 20120403
  Serious: No
  Sender: FDA-Public Use
  Company Number: US-PFIZER INC-2011310421

PATIENT
  Sex: Male
  Weight: 63.4 kg

DRUGS (11)
  1. LISINOPRIL [Concomitant]
     Dosage: 5 MG, UNK
     Route: 048
  2. PREVACID [Concomitant]
     Dosage: 15 MG, UNK
     Route: 048
  3. OCTREOTIDE [Concomitant]
     Dosage: 100 UG, UNK
     Route: 058
  4. GAS-X [Concomitant]
     Route: 048
  5. TRILIPIX [Concomitant]
     Dosage: 45 MG, UNK
     Route: 048
  6. SUTENT [Suspect]
     Dosage: 50 MG, 1X/DAY, FOR 4 WEEKS ON THEN 2 WEEKS ON THEN 2 WEEKS OFF
     Route: 048
  7. NOVOLOG [Concomitant]
     Dosage: 100 ML, UNK
     Route: 058
  8. ALPRAZOLAM [Concomitant]
     Dosage: 0.25 MG, UNK
     Route: 048
  9. ASPIRIN [Concomitant]
     Dosage: 81 MG, UNK
     Route: 048
  10. ZOLPIDEM TARTRATE [Concomitant]
     Dosage: 6.25 MG, UNK
     Route: 048
  11. NIACIN [Concomitant]
     Dosage: 125 MG, UNK
     Route: 048

REACTIONS (4)
  - ORAL HERPES [None]
  - DECREASED APPETITE [None]
  - NAUSEA [None]
  - VOMITING [None]
